FAERS Safety Report 24425883 (Version 2)
Quarter: 2024Q4

REPORT INFORMATION
  Report Type: Spontaneous
  Country: US (occurrence: US)
  Receive Date: 20241011
  Receipt Date: 20241024
  Transmission Date: 20250114
  Serious: Yes (Other)
  Sender: AUROBINDO
  Company Number: US-MLMSERVICE-20240923-PI202205-00249-1

PATIENT
  Age: 77 Year
  Sex: Female

DRUGS (3)
  1. OXALIPLATIN [Suspect]
     Active Substance: OXALIPLATIN
     Indication: Rectal adenocarcinoma
     Dosage: UNK, CYCLICAL (4 CYCLES)
     Route: 065
  2. LEUCOVORIN [Concomitant]
     Active Substance: LEUCOVORIN\LEUCOVORIN CALCIUM
     Indication: Metastases to lung
     Dosage: UNK UNK, CYCLICAL (4 CYCLES)
     Route: 065
  3. FLUOROURACIL [Concomitant]
     Active Substance: FLUOROURACIL
     Indication: Metastases to lung
     Dosage: UNK UNK, CYCLICAL (4 CYCLES)
     Route: 065

REACTIONS (3)
  - Peripheral sensory neuropathy [Unknown]
  - Phrenic nerve paralysis [Unknown]
  - Diaphragmatic paralysis [Unknown]
